FAERS Safety Report 5506515-7 (Version None)
Quarter: 2007Q4

REPORT INFORMATION
  Report Type: 
  Country: None (occurrence: None)
  Receive Date: 20071105
  Receipt Date: 20071031
  Transmission Date: 20080405
  Serious: Yes (Other)
  Sender: FDA-Public Use
  Company Number: A0690779A

PATIENT
  Sex: Male

DRUGS (1)
  1. FLOVENT [Suspect]
     Indication: ASTHMA
     Route: 055

REACTIONS (2)
  - GROWTH RETARDATION [None]
  - IMMUNOSUPPRESSION [None]
